FAERS Safety Report 17828213 (Version 1)
Quarter: 2020Q2

REPORT INFORMATION
  Report Type: Spontaneous
  Country: US (occurrence: US)
  Receive Date: 20200527
  Receipt Date: 20200527
  Transmission Date: 20200714
  Serious: Yes (Hospitalization)
  Sender: FDA-Public Use
  Company Number: US-TORRENT-00010239

PATIENT
  Age: 17 Year
  Sex: Female

DRUGS (3)
  1. DESVENLAFAXINE. [Suspect]
     Active Substance: DESVENLAFAXINE
     Indication: PRODUCT USED FOR UNKNOWN INDICATION
     Dosage: UNKNOWN
     Route: 048
  2. BUPROPION XL [Suspect]
     Active Substance: BUPROPION
     Indication: PRODUCT USED FOR UNKNOWN INDICATION
     Dosage: UNKNOWN
     Route: 048
  3. OLANZAPINE. [Suspect]
     Active Substance: OLANZAPINE
     Indication: PRODUCT USED FOR UNKNOWN INDICATION
     Dosage: UNKNOWN
     Route: 048

REACTIONS (8)
  - Overdose [Not Recovered/Not Resolved]
  - Product residue present [Not Recovered/Not Resolved]
  - Loss of consciousness [Recovering/Resolving]
  - Bezoar [Not Recovered/Not Resolved]
  - Tachypnoea [Recovering/Resolving]
  - Seizure [Recovering/Resolving]
  - Toxicity to various agents [Recovering/Resolving]
  - Tachycardia [Recovering/Resolving]
